FAERS Safety Report 16385396 (Version 5)
Quarter: 2019Q4

REPORT INFORMATION
  Report Type: Report from Study
  Country: US (occurrence: US)
  Receive Date: 20190603
  Receipt Date: 20191107
  Transmission Date: 20200122
  Serious: Yes (Hospitalization)
  Sender: FDA-Public Use
  Company Number: US-EISAI MEDICAL RESEARCH-EC-2019-053860

PATIENT
  Age: 76 Year
  Sex: Female
  Weight: 102 kg

DRUGS (7)
  1. LENVIMA [Suspect]
     Active Substance: LENVATINIB
     Route: 048
  2. RANEXA [Concomitant]
     Active Substance: RANOLAZINE
  3. LENVIMA [Suspect]
     Active Substance: LENVATINIB
     Indication: THYROID CANCER
     Route: 048
     Dates: start: 20181117, end: 20181217
  4. ASPIRIN. [Concomitant]
     Active Substance: ASPIRIN
  5. LENVIMA [Suspect]
     Active Substance: LENVATINIB
     Route: 048
     Dates: start: 20181218
  6. LOSARTAN. [Concomitant]
     Active Substance: LOSARTAN
  7. TYLENOL [Concomitant]
     Active Substance: ACETAMINOPHEN

REACTIONS (17)
  - Hypertension [Not Recovered/Not Resolved]
  - Decreased appetite [Unknown]
  - Night sweats [Unknown]
  - Nausea [Unknown]
  - Asthenia [Unknown]
  - Skin odour abnormal [Unknown]
  - Fatigue [Unknown]
  - Constipation [Recovered/Resolved]
  - Hyperthyroidism [Unknown]
  - Chest pain [Unknown]
  - Blood pressure abnormal [Recovered/Resolved]
  - Taste disorder [Unknown]
  - Weight decreased [Unknown]
  - Biliary colic [Unknown]
  - Alopecia [Unknown]
  - Amnesia [Unknown]
  - Urine odour abnormal [Unknown]

NARRATIVE: CASE EVENT DATE: 201812
